FAERS Safety Report 9376306 (Version 2)
Quarter: 2013Q4

REPORT INFORMATION
  Report Type: Spontaneous
  Country: CH (occurrence: CH)
  Receive Date: 20130701
  Receipt Date: 20131206
  Transmission Date: 20140711
  Serious: Yes (Other)
  Sender: FDA-Public Use
  Company Number: CH-JNJFOC-20130611326

PATIENT
  Sex: Female

DRUGS (2)
  1. CONCERTA [Suspect]
     Indication: BORDERLINE PERSONALITY DISORDER
     Route: 048
     Dates: end: 20130619
  2. CONCERTA [Suspect]
     Indication: ATTENTION DEFICIT/HYPERACTIVITY DISORDER
     Route: 048
     Dates: end: 20130619

REACTIONS (1)
  - Exposure during pregnancy [Unknown]
